FAERS Safety Report 9396336 (Version 1)
Quarter: 2013Q3

REPORT INFORMATION
  Report Type: Spontaneous
  Country: US (occurrence: None)
  Receive Date: 20130708
  Receipt Date: 20130708
  Transmission Date: 20140515
  Serious: Yes (Other)
  Sender: FDA-Public Use
  Company Number: JPI-P-033360

PATIENT
  Age: 45 Year
  Sex: Female

DRUGS (1)
  1. XYREM [Suspect]
     Indication: NARCOLEPSY
     Dosage: 4.5 GM, (2.25 GM, 2 IN 1 D), ORAL
     Route: 048
     Dates: start: 20040915

REACTIONS (4)
  - Breast cancer [None]
  - Hysterectomy [None]
  - Mastectomy [None]
  - Post-traumatic stress disorder [None]
